FAERS Safety Report 7323706-3 (Version None)
Quarter: 2011Q1

REPORT INFORMATION
  Report Type: 
  Country: None (occurrence: None)
  Receive Date: 20110217
  Receipt Date: 20110203
  Transmission Date: 20110831
  Serious: Yes (Other)
  Sender: FDA-Public Use
  Company Number: DE-001499

PATIENT
  Sex: Female

DRUGS (2)
  1. FENTISTIL [Concomitant]
  2. NAGLAZYME [Suspect]
     Indication: MUCOPOLYSACCHARIDOSIS VI
     Dosage: (25 MG 1X/WEEK INTRAVENOUS DRIP)
     Route: 041
     Dates: start: 20050916

REACTIONS (2)
  - INFUSION RELATED REACTION [None]
  - URTICARIA [None]
